FAERS Safety Report 13982385 (Version 1)
Quarter: 2017Q3

REPORT INFORMATION
  Report Type: Spontaneous
  Country: US (occurrence: US)
  Receive Date: 20170918
  Receipt Date: 20170918
  Transmission Date: 20171128
  Serious: No
  Sender: FDA-Public Use
  Company Number: US-PFIZER INC-2017399331

PATIENT
  Age: 67 Year
  Sex: Male
  Weight: 79.38 kg

DRUGS (9)
  1. METHOTREXATE. [Concomitant]
     Active Substance: METHOTREXATE
     Indication: RHEUMATOID ARTHRITIS
     Dosage: 10 MG, WEEKLY, (4 TABLETS ONCE A WEEK)
     Route: 048
  2. VITAMIN D3 [Concomitant]
     Active Substance: CHOLECALCIFEROL
     Indication: ASTHENIA
     Dosage: 5000 IU, DAILY
  3. FOLIC ACID. [Concomitant]
     Active Substance: FOLIC ACID
     Dosage: 1 MG, 1X/DAY
     Route: 048
  4. CENTRUM SILVER [Concomitant]
     Active Substance: MINERALS\VITAMINS
     Indication: ASTHENIA
     Dosage: 1 DF, DAILY
  5. ATORVASTATIN [Concomitant]
     Active Substance: ATORVASTATIN
     Indication: BLOOD CHOLESTEROL
     Dosage: 20 MG, 1X/DAY (ONE TABLET A DAY AT NIGHT)
     Route: 048
  6. EQUATE ALLERGY RELIEF [Concomitant]
     Indication: SINUS DISORDER
     Dosage: 180 MG, 1X/DAY (ONE AT NIGHT)
  7. FOLIC ACID. [Concomitant]
     Active Substance: FOLIC ACID
     Dosage: 2 DF, DAILY (TAKING TWO TABLETS A DAY)
  8. XELJANZ XR [Suspect]
     Active Substance: TOFACITINIB CITRATE
     Indication: RHEUMATOID ARTHRITIS
     Dosage: 11 MG, 1X/DAY
     Route: 048
     Dates: start: 201612
  9. MAGNESIUM OXIDE. [Concomitant]
     Active Substance: MAGNESIUM OXIDE
     Indication: CARDIAC DISORDER
     Dosage: 400 MG, 1X/DAY
     Route: 048

REACTIONS (1)
  - Condition aggravated [Recovered/Resolved]

NARRATIVE: CASE EVENT DATE: 201708
